FAERS Safety Report 11943846 (Version 1)
Quarter: 2016Q1

REPORT INFORMATION
  Report Type: Spontaneous
  Country: US (occurrence: US)
  Receive Date: 20160125
  Receipt Date: 20160125
  Transmission Date: 20160526
  Serious: No
  Sender: FDA-Public Use
  Company Number: US-UNITED THERAPEUTICS-UNT-2015-010000

PATIENT
  Sex: Male
  Weight: 94.79 kg

DRUGS (7)
  1. TYVASO [Suspect]
     Active Substance: TREPROSTINIL
     Indication: PULMONARY HYPERTENSION
     Dosage: 18-54 MICROGRAMS, QID
     Dates: start: 20150720
  2. LETAIRIS [Concomitant]
     Active Substance: AMBRISENTAN
     Indication: PRODUCT USED FOR UNKNOWN INDICATION
  3. PRADAXA [Concomitant]
     Active Substance: DABIGATRAN ETEXILATE MESYLATE
     Indication: PRODUCT USED FOR UNKNOWN INDICATION
  4. TYVASO [Suspect]
     Active Substance: TREPROSTINIL
     Dosage: 18-54 MICROGRAMS, QID
     Dates: start: 20150803
  5. TYVASO [Suspect]
     Active Substance: TREPROSTINIL
     Dosage: UNK
     Dates: end: 201509
  6. ADCIRCA [Concomitant]
     Active Substance: TADALAFIL
     Indication: PRODUCT USED FOR UNKNOWN INDICATION
  7. TYVASO [Suspect]
     Active Substance: TREPROSTINIL
     Dosage: 12 ?G, UNK

REACTIONS (16)
  - Chest discomfort [Unknown]
  - Confusional state [Unknown]
  - Cough [Unknown]
  - Oedema peripheral [Unknown]
  - Headache [Unknown]
  - Lethargy [Unknown]
  - Drug ineffective [Unknown]
  - Fatigue [Unknown]
  - Blood pressure decreased [Unknown]
  - Flushing [Unknown]
  - Asthenia [Unknown]
  - Feeling abnormal [Unknown]
  - Malaise [Unknown]
  - Drug intolerance [Unknown]
  - Depressed mood [Not Recovered/Not Resolved]
  - Diarrhoea [Unknown]

NARRATIVE: CASE EVENT DATE: 2015
